FAERS Safety Report 8200983 (Version 9)
Quarter: 2012Q4

REPORT INFORMATION
  Report Type: 
  Country: US (occurrence: US)
  Receive Date: 20111026
  Receipt Date: 20120911
  Transmission Date: 20130627
  Serious: Yes (Death, Life-Threatening, Hospitalization)
  Sender: FDA-Public Use
  Company Number: US-PFIZER INC-2011245366

PATIENT
  Age: 67 Year
  Sex: Male
  Weight: 89 kg

DRUGS (14)
  1. CRIZOTINIB [Suspect]
     Indication: NON-SMALL CELL LUNG CANCER
     Dosage: 250 mg, 2x/day
     Route: 048
     Dates: start: 20110603, end: 20111024
  2. LEVOTHYROXINE SODIUM [Suspect]
     Indication: HYPOTHYROIDISM
     Dosage: 50 ug, 1x/day,
     Route: 048
     Dates: end: 20111105
  3. BENZONATATE [Suspect]
     Indication: COUGH
     Dosage: 100 mg, as needed
     Route: 048
     Dates: end: 20111105
  4. VANCOMYCIN HCL [Suspect]
     Dosage: 1750 mg, once, IVPB
     Route: 042
     Dates: start: 20111015, end: 20111015
  5. VANCOMYCIN HCL [Suspect]
     Dosage: 1500 mg, 2x/day, IVPB
     Route: 042
     Dates: start: 20111015, end: 20111016
  6. ASPIRIN [Suspect]
     Indication: CARDIOVASCULAR EVENT PROPHYLAXIS
     Dosage: 80 mg, daily, tablet
     Route: 048
     Dates: end: 20111105
  7. POTASSIUM CHLORIDE [Suspect]
     Indication: SUPPLEMENTATION THERAPY
     Dosage: 20 mEq, 1x/day, tablet
     Route: 048
     Dates: end: 20111105
  8. ZETIA [Suspect]
     Indication: HYPERLIPIDAEMIA
     Dosage: 10 mg, 1x/day, tablet
     Route: 048
     Dates: end: 20111105
  9. ZOCOR [Suspect]
     Indication: HYPERLIPIDAEMIA
     Dosage: 40 mg, 1x/day, tablet
     Route: 048
     Dates: end: 20111105
  10. COREG [Suspect]
     Indication: HYPERTENSION
     Dosage: 3.125 mg, 1x/day
     Route: 048
     Dates: end: 20111010
  11. LASIX [Suspect]
     Indication: HYPERTENSION
     Dosage: UNK, tablet
     Route: 048
     Dates: start: 20111025, end: 20111105
  12. FLUZONE [Suspect]
     Indication: INFLUENZA IMMUNISATION
     Dosage: 1 DF, single, injection
     Route: 058
     Dates: start: 20111005, end: 20111005
  13. LEVOFLOXACIN [Suspect]
     Dosage: 750 mg/ D5W 150 ml Q24h, IVPB
     Route: 042
     Dates: start: 20111015, end: 20111018
  14. MEROPENEM [Suspect]
     Dosage: 1 gram in 50 ml NS Q8h, IVPB
     Route: 042
     Dates: start: 20111015, end: 20111019

REACTIONS (6)
  - Orthostatic hypotension [Recovering/Resolving]
  - Ileus [Recovering/Resolving]
  - Constipation [Recovering/Resolving]
  - Failure to thrive [Unknown]
  - Disease progression [Fatal]
  - Non-small cell lung cancer [Fatal]
